FAERS Safety Report 7744862-9 (Version None)
Quarter: 2011Q3

REPORT INFORMATION
  Report Type: 
  Country: None (occurrence: None)
  Receive Date: 20110912
  Receipt Date: 20110906
  Transmission Date: 20111222
  Serious: Yes (Other)
  Sender: FDA-Public Use
  Company Number: UA-AMGEN-UK375039

PATIENT
  Age: 59 Year
  Sex: Female
  Weight: 76 kg

DRUGS (2)
  1. DENOSUMAB [Suspect]
     Indication: METASTASES TO BONE
     Dosage: UNK BLINDED, Q4WK
     Route: 058
     Dates: start: 20070109
  2. HEXETIDINE [Concomitant]
     Dosage: UNK UNK, TID
     Route: 048
     Dates: start: 20000929

REACTIONS (1)
  - OSTEOMYELITIS [None]
